FAERS Safety Report 8133358-0 (Version None)
Quarter: 2012Q1

REPORT INFORMATION
  Report Type: 
  Country: None (occurrence: None)
  Receive Date: 20120213
  Receipt Date: 20120203
  Transmission Date: 20120608
  Serious: Yes (Hospitalization)
  Sender: FDA-Public Use
  Company Number: US-ACTELION-A-NJ2011-59144

PATIENT

DRUGS (6)
  1. OXYGEN [Concomitant]
  2. EPOPROSTENOL SODIUM [Suspect]
     Indication: PULMONARY ARTERIAL HYPERTENSION
     Dosage: 24 NG/KG, PER MIN
     Route: 041
     Dates: start: 20100810
  3. COUMADIN [Concomitant]
  4. PREDNISONE TAB [Concomitant]
  5. SILDENAFIL [Concomitant]
  6. CALCIUM CHANNEL BLOCKERS [Concomitant]

REACTIONS (4)
  - TREATMENT NONCOMPLIANCE [None]
  - FATIGUE [None]
  - ADRENAL INSUFFICIENCY [None]
  - ASTHENIA [None]
